FAERS Safety Report 9805242 (Version 1)
Quarter: 2014Q1

REPORT INFORMATION
  Report Type: Spontaneous
  Country: US (occurrence: US)
  Receive Date: 20140109
  Receipt Date: 20140109
  Transmission Date: 20141002
  Serious: No
  Sender: FDA-Public Use
  Company Number: US-009507513-1401USA002909

PATIENT
  Age: 29 Year
  Sex: Female
  Weight: 78.5 kg

DRUGS (3)
  1. NUVARING [Suspect]
     Indication: CONTRACEPTION
     Dosage: ONE RING INSERTED CONTINUOUSLY FOR THREE WEEKS, FOLLOWED BY A ONE-WEEK RING-FREE INTERVAL
     Route: 067
     Dates: start: 20140107, end: 20140107
  2. NUVARING [Suspect]
     Dosage: ONE RING INSERTED CONTINUOUSLY FOR THREE WEEKS, FOLLOWED BY A ONE-WEEK RING-FREE INTERVAL
     Route: 067
     Dates: start: 20140107
  3. LEVOTHYROXINE SODIUM [Concomitant]
     Route: 048

REACTIONS (4)
  - Feeling abnormal [Recovering/Resolving]
  - Fear [Recovering/Resolving]
  - Nervousness [Recovering/Resolving]
  - Inappropriate schedule of drug administration [Unknown]
